FAERS Safety Report 4911705-8 (Version None)
Quarter: 2006Q1

REPORT INFORMATION
  Report Type: 
  Country: None (occurrence: None)
  Receive Date: 20060213
  Receipt Date: 20060202
  Transmission Date: 20060701
  Serious: Yes (Other)
  Sender: FDA-Public Use
  Company Number: 2006018591

PATIENT
  Age: 60 Year
  Sex: Male
  Weight: 95.2554 kg

DRUGS (9)
  1. DEPO-MEDROL [Suspect]
     Indication: HYPOAESTHESIA
     Dates: start: 20051231
  2. DEPO-MEDROL [Suspect]
     Indication: INTERVERTEBRAL DISC PROTRUSION
     Dates: start: 20051231
  3. DEPO-MEDROL [Suspect]
     Indication: PAIN
     Dates: start: 20051231
  4. OXYCONTIN [Concomitant]
  5. NAPROXEN [Concomitant]
  6. ZOLOFT [Concomitant]
  7. OMEPRAZOLE [Concomitant]
  8. VALSARTAN [Concomitant]
  9. ALL OTHER THERAPEUTIC PRODUCTS (ALL OTHER THERAPEUTIC PRODUCTS) [Concomitant]

REACTIONS (4)
  - DRUG INEFFECTIVE [None]
  - INADEQUATE ANALGESIA [None]
  - THERAPEUTIC RESPONSE UNEXPECTED [None]
  - WHITE BLOOD CELL COUNT INCREASED [None]
